FAERS Safety Report 6295984-3 (Version None)
Quarter: 2009Q3

REPORT INFORMATION
  Report Type: 
  Country: None (occurrence: None)
  Receive Date: 20090804
  Receipt Date: 20090727
  Transmission Date: 20100115
  Serious: Yes (Hospitalization)
  Sender: FDA-Public Use
  Company Number: US-ASTRAZENECA-2009SE06054

PATIENT
  Age: 86 Year
  Sex: Female

DRUGS (3)
  1. TOPROL-XL [Suspect]
     Route: 048
     Dates: start: 20010101, end: 20040101
  2. TOPROL-XL [Suspect]
     Route: 048
     Dates: start: 20040101
  3. LIPITOR [Concomitant]
     Route: 048
     Dates: start: 20010101

REACTIONS (3)
  - ABDOMINAL HERNIA [None]
  - HYPOTENSION [None]
  - MUSCLE SPASMS [None]
